FAERS Safety Report 4434517-0 (Version None)
Quarter: 2004Q3

REPORT INFORMATION
  Report Type: 
  Country: None (occurrence: None)
  Receive Date: 20040726
  Receipt Date: 20040414
  Transmission Date: 20050211
  Serious: No
  Sender: FDA-Public Use
  Company Number: USA040464842

PATIENT
  Age: 65 Year
  Sex: Female
  Weight: 63 kg

DRUGS (7)
  1. EVISTA [Suspect]
     Indication: OSTEOPOROSIS
     Dates: start: 20020101, end: 20040407
  2. FORTEO [Suspect]
     Indication: OSTEOPOROSIS
     Dosage: 20 UG/1 DAY
     Dates: start: 20040401
  3. SYNTHROID [Concomitant]
  4. ATACAND [Concomitant]
  5. ACIPHEX [Concomitant]
  6. TRICOR [Concomitant]
  7. ACTONEL [Concomitant]

REACTIONS (4)
  - BLOOD HOMOCYSTEINE INCREASED [None]
  - FATIGUE [None]
  - HAEMORRHOIDS [None]
  - THROMBOSIS [None]
